FAERS Safety Report 7226590-1 (Version None)
Quarter: 2011Q1

REPORT INFORMATION
  Report Type: 
  Country: None (occurrence: None)
  Receive Date: 20110105
  Receipt Date: 20101220
  Transmission Date: 20110831
  Serious: Yes (Death)
  Sender: FDA-Public Use
  Company Number: 200700553

PATIENT
  Age: 62 Year
  Sex: Female

DRUGS (4)
  1. ERLOTINIB (ERLOTINIB) (TABLET) (ERLOTINIB) [Suspect]
     Indication: NON-SMALL CELL LUNG CANCER
     Dosage: 150 MG (150 MG, QD), ORAL
     Route: 048
     Dates: start: 20070128, end: 20070227
  2. CARBOPLATIN [Suspect]
     Indication: NON-SMALL CELL LUNG CANCER
     Dosage: 654 (654, 654 UNIT 1 X PER 3 WEEK), INTRAVENOUS
     Route: 042
     Dates: start: 20061102, end: 20070108
  3. DOCETAXEL [Suspect]
     Indication: NON-SMALL CELL LUNG CANCER
     Dosage: 120 MG (120 MG, 120 MG 1 X PER 3 WEEK), INTRAVENOUS
     Route: 042
     Dates: start: 20061102, end: 20070108
  4. BEVACIZUMAB (INJECTION FOR INFUSION) [Suspect]
     Indication: NON-SMALL CELL LUNG CANCER
     Dosage: 850 MG (850 MG, 850 MG 1X PER 3 WEEK/100 MG), INTRAVENOUS
     Route: 042
     Dates: start: 20061102, end: 20070219

REACTIONS (5)
  - FATIGUE [None]
  - PYREXIA [None]
  - CARDIAC ARREST [None]
  - MYALGIA [None]
  - DIARRHOEA [None]
